FAERS Safety Report 9015455 (Version 1)
Quarter: 2013Q1

REPORT INFORMATION
  Report Type: Spontaneous
  Country: HU (occurrence: HU)
  Receive Date: 20130116
  Receipt Date: 20130116
  Transmission Date: 20140127
  Serious: Yes (Other)
  Sender: FDA-Public Use
  Company Number: HU-PFIZER INC-2013015925

PATIENT
  Age: 77 Year
  Sex: Female
  Weight: 62 kg

DRUGS (4)
  1. XALATAN [Suspect]
     Indication: GLAUCOMA
     Dosage: 1 X 1 DROP/DAY
     Dates: start: 201203
  2. VALSOTENS [Concomitant]
     Dosage: UNK
  3. RYTMONORM [Concomitant]
     Dosage: UNK
  4. CONCOR [Concomitant]
     Dosage: UNK

REACTIONS (3)
  - Visual field defect [Not Recovered/Not Resolved]
  - Lacrimation increased [Not Recovered/Not Resolved]
  - Drug ineffective [Not Recovered/Not Resolved]
